FAERS Safety Report 8347077-9 (Version None)
Quarter: 2012Q2

REPORT INFORMATION
  Report Type: 
  Country: None (occurrence: None)
  Receive Date: 20120509
  Receipt Date: 20120425
  Transmission Date: 20120825
  Serious: Yes (Other)
  Sender: FDA-Public Use
  Company Number: IR-JNJFOC-20120504431

PATIENT
  Age: 21 Year
  Sex: Male

DRUGS (3)
  1. TRAMADOL HCL [Suspect]
     Route: 065
  2. TRAMADOL HCL [Suspect]
     Route: 065
  3. TRAMADOL HCL [Suspect]
     Indication: SLEEP DISORDER
     Route: 065

REACTIONS (3)
  - DEPENDENCE [None]
  - HYPOMANIA [None]
  - WITHDRAWAL SYNDROME [None]
